FAERS Safety Report 25000123 (Version 3)
Quarter: 2025Q2

REPORT INFORMATION
  Report Type: Spontaneous
  Country: US (occurrence: US)
  Receive Date: 20250222
  Receipt Date: 20250521
  Transmission Date: 20250716
  Serious: No
  Sender: SANOFI AVENTIS
  Company Number: US-SA-2025SA048855

PATIENT
  Age: 66 Year
  Sex: Male

DRUGS (34)
  1. REZUROCK [Suspect]
     Active Substance: BELUMOSUDIL
     Indication: Chronic graft versus host disease
     Dosage: 200 MG, QD
     Route: 048
  2. ADVAIR HFA [Concomitant]
     Active Substance: FLUTICASONE PROPIONATE\SALMETEROL XINAFOATE
  3. ALLEGRA ALLERGY [Concomitant]
     Active Substance: FEXOFENADINE HYDROCHLORIDE
  4. ATOVAQUONE [Concomitant]
     Active Substance: ATOVAQUONE
     Route: 048
  5. BENADRYL [Concomitant]
     Active Substance: DIPHENHYDRAMINE HYDROCHLORIDE
  6. BENZONATATE [Concomitant]
     Active Substance: BENZONATATE
  7. DOCUSATE SODIUM [Concomitant]
     Active Substance: DOCUSATE SODIUM
  8. DOXAZOSIN [Concomitant]
     Active Substance: DOXAZOSIN MESYLATE
  9. FAMOTIDINE [Concomitant]
     Active Substance: FAMOTIDINE
  10. FEXOFENADINE [Concomitant]
     Active Substance: FEXOFENADINE HYDROCHLORIDE
  11. LOKELMA [Concomitant]
     Active Substance: SODIUM ZIRCONIUM CYCLOSILICATE
  12. LOPERAMIDE [Concomitant]
     Active Substance: LOPERAMIDE
  13. METHOCARBAMOL [Concomitant]
     Active Substance: METHOCARBAMOL
  14. OLANZAPINE [Concomitant]
     Active Substance: OLANZAPINE
  15. ONDANSETRON ODT [ONDANSETRON] [Concomitant]
  16. OXYCODONE AND ACETAMINOPHEN [Concomitant]
     Active Substance: ACETAMINOPHEN\OXYCODONE HYDROCHLORIDE
  17. POSACONAZOLE DELAYED RELEASE [Concomitant]
  18. PREDNISONE [Concomitant]
     Active Substance: PREDNISONE
  19. PREVYMIS [Concomitant]
     Active Substance: LETERMOVIR
     Route: 042
  20. SENNA [Concomitant]
     Active Substance: SENNOSIDES
  21. SINGULAIR [Concomitant]
     Active Substance: MONTELUKAST SODIUM
  22. TACROLIMUS [Concomitant]
     Active Substance: TACROLIMUS
  23. TRIAMCINOLONE ACETONIDE [Concomitant]
     Active Substance: TRIAMCINOLONE ACETONIDE
  24. URSODIOL [Concomitant]
     Active Substance: URSODIOL
  25. VALACYCLOVIR [Concomitant]
     Active Substance: VALACYCLOVIR HYDROCHLORIDE
  26. VITAMIN D3 [Concomitant]
     Active Substance: CHOLECALCIFEROL
  27. ZARXIO [Concomitant]
     Active Substance: FILGRASTIM-SNDZ
  28. CALCIUM CARBONATE\VITAMIN D [Concomitant]
     Active Substance: CALCIUM CARBONATE\VITAMIN D
     Route: 048
  29. COLACE [Concomitant]
     Active Substance: DOCUSATE SODIUM
  30. HYDROCORTISONE [Concomitant]
     Active Substance: HYDROCORTISONE
  31. LOKELMA [Concomitant]
     Active Substance: SODIUM ZIRCONIUM CYCLOSILICATE
  32. MIEBO [Concomitant]
     Active Substance: PERFLUOROHEXYLOCTANE
  33. AUGMENTIN [Concomitant]
     Active Substance: AMOXICILLIN\CLAVULANATE POTASSIUM
  34. TADALAFIL [Concomitant]
     Active Substance: TADALAFIL

REACTIONS (5)
  - Joint stiffness [Not Recovered/Not Resolved]
  - Constipation [Recovering/Resolving]
  - Skin laceration [Unknown]
  - Localised infection [Unknown]
  - Arthralgia [Not Recovered/Not Resolved]
